FAERS Safety Report 8904379 (Version 2)
Quarter: 2013Q1

REPORT INFORMATION
  Report Type: Report from Study
  Country: JP (occurrence: JP)
  Receive Date: 20121112
  Receipt Date: 20130329
  Transmission Date: 20140127
  Serious: Yes (Other)
  Sender: FDA-Public Use
  Company Number: JP-009507513-2012SP034587

PATIENT
  Age: 75 Year
  Sex: Female
  Weight: 64 kg

DRUGS (5)
  1. PEGINTRON [Suspect]
     Indication: CHRONIC HEPATITIS C
     Dosage: 1.5 MICROGRAM PER KILOGRAM, QW
     Route: 058
     Dates: start: 20120417, end: 20120529
  2. REBETOL [Suspect]
     Indication: CHRONIC HEPATITIS C
     Dosage: 400 MG, QD
     Route: 048
     Dates: start: 20120417, end: 20120529
  3. TELAVIC [Suspect]
     Indication: CHRONIC HEPATITIS C
     Dosage: 2250 MG,QD
     Route: 048
     Dates: start: 20120417, end: 20120507
  4. TELAVIC [Suspect]
     Dosage: 1500 MG,QD
     Route: 048
     Dates: start: 20120508, end: 20120529
  5. NAUZELIN [Concomitant]
     Indication: NAUSEA
     Dosage: 30 MG, QD
     Route: 048
     Dates: start: 20120424, end: 20120529

REACTIONS (1)
  - Blood creatinine increased [Recovering/Resolving]
